FAERS Safety Report 5306419-9 (Version None)
Quarter: 2007Q2

REPORT INFORMATION
  Report Type: 
  Country: None (occurrence: None)
  Receive Date: 20070419
  Receipt Date: 20070410
  Transmission Date: 20071010
  Serious: Yes (Hospitalization)
  Sender: FDA-Public Use
  Company Number: GXKR2007GB03332

PATIENT
  Age: 57 Year
  Sex: Male
  Weight: 90 kg

DRUGS (7)
  1. CO-CODAMOL (NGX) ( ACETAMINOPHEN (PARACETAMOL), CODEINE PHOSPHATE), UN [Suspect]
  2. GRAPEFRUIT JUICE (CITRUS X PARADISI FRUIT JUICE) [Suspect]
     Dosage: 1 I, QD,  ORAL
     Route: 048
  3. LIPITOR [Suspect]
     Indication: HYPERCHOLESTEROLAEMIA
     Dosage: 20 MG, QD, ORAL
     Route: 048
     Dates: start: 20020501, end: 20050101
  4. DICLOFENAC (DICLOFENAC) [Concomitant]
  5. FLOXACILLIN SODIUM [Concomitant]
  6. FUCIDINE CAP [Concomitant]
  7. OMEPRAZOLE [Concomitant]

REACTIONS (4)
  - DRUG INTERACTION [None]
  - RHABDOMYOLYSIS [None]
  - UNEVALUABLE EVENT [None]
  - WEIGHT DECREASED [None]
